FAERS Safety Report 6470017-4 (Version None)
Quarter: 2009Q4

REPORT INFORMATION
  Report Type: 
  Country: None (occurrence: None)
  Receive Date: 20091203
  Receipt Date: 20080219
  Transmission Date: 20100525
  Serious: Yes (Other)
  Sender: FDA-Public Use
  Company Number: US-ELI_LILLY_AND_COMPANY-US200710005239

PATIENT
  Age: 51 Year
  Sex: Male

DRUGS (9)
  1. BYETTA [Suspect]
     Dosage: 10 UG, UNKNOWN
     Route: 058
     Dates: start: 20070501, end: 20070701
  2. BYETTA [Suspect]
     Dosage: 10 UG, 2/D
     Route: 058
     Dates: start: 20070701, end: 20070901
  3. MOTRIN [Concomitant]
     Dosage: 800 MG, 3/D
     Route: 048
     Dates: end: 20070901
  4. HYDROCHLOROTHIAZIDE [Concomitant]
     Dosage: 25 MG, DAILY (1/D)
     Dates: end: 20070901
  5. FELODIPINE [Concomitant]
     Dosage: 10 MG, DAILY (1/D)
  6. LISINOPRIL [Concomitant]
     Dosage: 20 MG, DAILY (1/D)
  7. SIMAVASTATIN [Concomitant]
     Dosage: 40 MG, EACH EVENING
  8. TYLENOL                                 /SCH/ [Concomitant]
     Dosage: 1 G, 4/D
     Route: 048
  9. METFORMIN HCL [Concomitant]
     Dosage: 1000 MG, 2/D
     Route: 048

REACTIONS (1)
  - PANCREATITIS ACUTE [None]
